FAERS Safety Report 19000559 (Version 1)
Quarter: 2021Q1

REPORT INFORMATION
  Report Type: Spontaneous
  Country: US (occurrence: US)
  Receive Date: 20210311
  Receipt Date: 20210311
  Transmission Date: 20210420
  Serious: No
  Sender: FDA-Public Use
  Company Number: US-NEXGEN PHARMA, INC.-2107875

PATIENT
  Age: 57 Year
  Sex: Female

DRUGS (1)
  1. CHENODAL [Suspect]
     Active Substance: CHENODIOL
     Indication: LIPID METABOLISM DISORDER
     Route: 048
     Dates: start: 20210204

REACTIONS (1)
  - Flatulence [Recovering/Resolving]

NARRATIVE: CASE EVENT DATE: 20210204
